FAERS Safety Report 6903581-9 (Version None)
Quarter: 2010Q3

REPORT INFORMATION
  Report Type: 
  Country: None (occurrence: None)
  Receive Date: 20100803
  Receipt Date: 20081031
  Transmission Date: 20110219
  Serious: No
  Sender: FDA-Public Use
  Company Number: US-PFIZER INC-2008016449

PATIENT
  Sex: Female
  Weight: 72.7 kg

DRUGS (7)
  1. LYRICA [Suspect]
     Indication: DIABETIC NEUROPATHY
     Dates: start: 20080211, end: 20080310
  2. METFORMIN HCL [Concomitant]
  3. TOPROL-XL [Concomitant]
  4. HYDROCHLOROTHIAZIDE [Concomitant]
  5. CYMBALTA [Concomitant]
  6. VITAMIN TAB [Concomitant]
  7. NEURONTIN [Concomitant]

REACTIONS (6)
  - ADVERSE DRUG REACTION [None]
  - DRUG INEFFECTIVE [None]
  - FEELING OF BODY TEMPERATURE CHANGE [None]
  - HEADACHE [None]
  - NEURALGIA [None]
  - PAIN IN JAW [None]
